FAERS Safety Report 23859370 (Version 1)
Quarter: 2024Q2

REPORT INFORMATION
  Report Type: Spontaneous
  Country: CN (occurrence: CN)
  Receive Date: 20240515
  Receipt Date: 20240515
  Transmission Date: 20240715
  Serious: Yes (Hospitalization)
  Sender: FDA-Public Use
  Company Number: CN-NAPPMUNDI-GBR-2024-0116615

PATIENT
  Age: 77 Year
  Sex: Male
  Weight: 47 kg

DRUGS (2)
  1. MORPHINE SULFATE [Suspect]
     Active Substance: MORPHINE SULFATE
     Indication: Analgesic therapy
     Dosage: 30 MILLIGRAM, Q12H
     Route: 048
     Dates: start: 20240421, end: 20240425
  2. MORPHINE SULFATE [Suspect]
     Active Substance: MORPHINE SULFATE
     Dosage: 60 MILLIGRAM, Q12H
     Route: 048
     Dates: start: 20240426, end: 20240427

REACTIONS (3)
  - Constipation [Recovering/Resolving]
  - Abdominal distension [Recovering/Resolving]
  - Nausea [Unknown]

NARRATIVE: CASE EVENT DATE: 20240427
